FAERS Safety Report 8342420-9 (Version None)
Quarter: 2012Q2

REPORT INFORMATION
  Report Type: 
  Country: None (occurrence: None)
  Receive Date: 20120508
  Receipt Date: 20120425
  Transmission Date: 20120825
  Serious: No
  Sender: FDA-Public Use
  Company Number: US-BIOGENIDEC-2012BI013359

PATIENT
  Age: 61 Year
  Sex: Female

DRUGS (1)
  1. TYSABRI [Suspect]
     Indication: MULTIPLE SCLEROSIS
     Route: 042
     Dates: start: 20120412

REACTIONS (6)
  - DIPLOPIA [None]
  - VISION BLURRED [None]
  - PHOTOPHOBIA [None]
  - OPTIC NEURITIS [None]
  - CHILLS [None]
  - ASTHENOPIA [None]
